FAERS Safety Report 21874939 (Version 1)
Quarter: 2023Q1

REPORT INFORMATION
  Report Type: Report from Study
  Country: US (occurrence: US)
  Receive Date: 20230117
  Receipt Date: 20230117
  Transmission Date: 20230417
  Serious: Yes (Other)
  Sender: FDA-Public Use
  Company Number: US-GILEAD-2023-0612900

PATIENT
  Sex: Male

DRUGS (1)
  1. IDELALISIB [Suspect]
     Active Substance: IDELALISIB
     Indication: Follicular lymphoma stage I
     Dosage: 100 MG, BID
     Route: 048

REACTIONS (2)
  - Neoplasm malignant [Unknown]
  - Impaired driving ability [Unknown]
